FAERS Safety Report 15098468 (Version 2)
Quarter: 2021Q1

REPORT INFORMATION
  Report Type: Spontaneous
  Country: JP (occurrence: JP)
  Receive Date: 20180702
  Receipt Date: 20210322
  Transmission Date: 20210419
  Serious: Yes (Hospitalization)
  Sender: FDA-Public Use
  Company Number: JP-TAKEDA-2018TUS021132

PATIENT
  Age: 24 Year
  Sex: Male

DRUGS (5)
  1. URINMET [Concomitant]
     Active Substance: POTASSIUM CITRATE\SODIUM CITRATE
     Indication: HYPERURICAEMIA
     Dosage: 1 DOSAGE FORM, TID
     Route: 048
     Dates: start: 20180427, end: 20180511
  2. FEBURIC [Suspect]
     Active Substance: FEBUXOSTAT
     Indication: HYPERURICAEMIA
     Dosage: 10 MILLIGRAM, QD
     Route: 048
     Dates: start: 20180427, end: 20180510
  3. CRESTOR [Suspect]
     Active Substance: ROSUVASTATIN CALCIUM
     Indication: HYPERCHOLESTEROLAEMIA
     Dosage: 2.5 MILLIGRAM, QD
     Route: 048
     Dates: start: 20180427, end: 20180511
  4. EPL CAP. [Concomitant]
     Indication: HEPATIC STEATOSIS
     Dosage: 500 MILLIGRAM, TID
     Route: 048
     Dates: start: 20180427, end: 20180511
  5. FEBURIC [Suspect]
     Active Substance: FEBUXOSTAT
     Dosage: 20 MILLIGRAM, QD
     Route: 048
     Dates: start: 20180511, end: 20180511

REACTIONS (2)
  - Hepatic function abnormal [Unknown]
  - Hypercreatinaemia [Unknown]

NARRATIVE: CASE EVENT DATE: 20180511
